FAERS Safety Report 9789062 (Version 1)
Quarter: 2013Q4

REPORT INFORMATION
  Report Type: Spontaneous
  Country: US (occurrence: US)
  Receive Date: 20131230
  Receipt Date: 20131230
  Transmission Date: 20140711
  Serious: No
  Sender: FDA-Public Use
  Company Number: US-ASTRAZENECA-2013SE89886

PATIENT
  Sex: Female

DRUGS (2)
  1. BRILINTA [Suspect]
     Indication: ILL-DEFINED DISORDER
     Route: 048
  2. BRILINTA [Suspect]
     Indication: ILL-DEFINED DISORDER
     Route: 048

REACTIONS (3)
  - Dyspnoea [Unknown]
  - Off label use [Unknown]
  - Off label use [Unknown]
